FAERS Safety Report 17452018 (Version 1)
Quarter: 2020Q1

REPORT INFORMATION
  Report Type: Spontaneous
  Country: DK (occurrence: DK)
  Receive Date: 20200224
  Receipt Date: 20200224
  Transmission Date: 20200409
  Serious: Yes (Other)
  Sender: FDA-Public Use
  Company Number: NVSC2020DK043555

PATIENT
  Age: 63 Year
  Sex: Female

DRUGS (4)
  1. METHOTREXAT ^SANDOZ^ [Suspect]
     Active Substance: METHOTREXATE SODIUM
     Indication: RHEUMATOID ARTHRITIS
     Dosage: STYRKE: 2.5 MG. DOSIS: F?R 19JAN2017 25 MGX1 UGL, DEREFTER 12.5 MGX1 UGL. FRA 9JAN2018 10 MGX1 UGL.
     Route: 048
     Dates: start: 20131010, end: 20180216
  2. PLAQUENIL [Concomitant]
     Active Substance: HYDROXYCHLOROQUINE SULFATE
     Indication: RHEUMATOID ARTHRITIS
     Dosage: STYRKE: 200 MG.
     Route: 048
     Dates: start: 20171204, end: 20190830
  3. FOLIMET [Concomitant]
     Active Substance: FOLIC ACID
     Indication: VITAMIN SUPPLEMENTATION
     Dosage: STYRKE: 5 MG.DOSIS: 1 TBL X 2 UGL (DAGENE EFTER MTX BEHANDLING)
     Route: 048
     Dates: start: 20131010, end: 20180216
  4. SALAZOPIRINA EN [Concomitant]
     Active Substance: SULFASALAZINE
     Indication: RHEUMATOID ARTHRITIS
     Dosage: 50 MG (STYRKE: 500 MG. DOSIS: UKENDT)
     Route: 048
     Dates: start: 20160824, end: 20160926

REACTIONS (13)
  - Feeling cold [Unknown]
  - Hepatic enzyme increased [Recovered/Resolved]
  - Impaired healing [Unknown]
  - Eye pruritus [Unknown]
  - Erythema [Unknown]
  - Platelet count decreased [Not Recovered/Not Resolved]
  - Rash [Unknown]
  - Alanine aminotransferase increased [Recovered/Resolved]
  - Skin hypertrophy [Unknown]
  - Hepatic fibrosis [Unknown]
  - Burning sensation [Unknown]
  - Dry skin [Unknown]
  - Eczema [Unknown]

NARRATIVE: CASE EVENT DATE: 2015
